FAERS Safety Report 15170382 (Version 1)
Quarter: 2018Q3

REPORT INFORMATION
  Report Type: Spontaneous
  Country: FR (occurrence: FR)
  Receive Date: 20180720
  Receipt Date: 20180720
  Transmission Date: 20181010
  Serious: Yes (Life-Threatening, Other)
  Sender: FDA-Public Use
  Company Number: FR-SA-2018SA194024

PATIENT
  Age: 64 Year
  Sex: Male

DRUGS (20)
  1. NEFOPAM MEDISOL [Suspect]
     Active Substance: NEFOPAM HYDROCHLORIDE
     Indication: ANALGESIC INTERVENTION SUPPORTIVE THERAPY
     Dosage: 100 MG, QD
     Route: 042
     Dates: start: 20180608, end: 20180608
  2. DROPERIDOL AGUETTANT [Suspect]
     Active Substance: DROPERIDOL
     Indication: PROCEDURAL VOMITING
     Dosage: 1.25 MG, QD
     Route: 042
     Dates: start: 20180608, end: 20180608
  3. PIPERACILLINE / TAZOBACTAM MYLAN [Suspect]
     Active Substance: PIPERACILLIN SODIUM\TAZOBACTAM SODIUM
     Indication: ANTIBIOTIC THERAPY
     Route: 042
     Dates: start: 20180615, end: 20180617
  4. KARDEGIC [Concomitant]
     Active Substance: ASPIRIN DL-LYSINE
     Dosage: 1 SACHET IN THE MORNING
  5. TRANDATE TAKEDA [Concomitant]
     Dosage: 1 DF, TID
  6. ICAZ LP [Concomitant]
     Active Substance: ISRADIPINE
     Dosage: 1 DF, QD
  7. RESIKALI [Concomitant]
     Active Substance: CALCIUM POLYSTYRENE SULFONATE
     Dosage: MEASURING SPOON OUTSIDE MEALS ON DAYS WITHOUT DIALYSIS
  8. NA BICARBONATE BAXTER [Concomitant]
     Dosage: 1 G MORNING AND EVENING
  9. SPECIAFOLDINE [Concomitant]
     Active Substance: FOLIC ACID
     Dosage: 1 TABLET 3D / WK
  10. AMIKACINE [AMIKACIN] [Suspect]
     Active Substance: AMIKACIN
     Indication: PYELONEPHRITIS ACUTE
     Route: 042
     Dates: start: 20180615, end: 20180615
  11. UVEDOSE [Concomitant]
     Active Substance: CHOLECALCIFEROL
     Dosage: 1 AMP EVERY 14 DAYS
  12. ATORVASTATIN [ATORVASTATIN CALCIUM] [Concomitant]
     Dosage: 1 DF, QD
  13. NEFOPAM MEDISOL [Suspect]
     Active Substance: NEFOPAM HYDROCHLORIDE
     Dosage: 20 MG
     Route: 042
     Dates: start: 20180610, end: 20180610
  14. KENZEN [Concomitant]
     Active Substance: CANDESARTAN
     Dosage: 1 DF, QD
  15. THYMOGLOBULINE [Suspect]
     Active Substance: LAPINE T-LYMPHOCYTE IMMUNE GLOBULIN
     Indication: RENAL TRANSPLANT
     Dosage: 75 MG ON 09 AND 10/06, 25 MG ON 11 AND 12/06/18
     Route: 042
     Dates: start: 20180609, end: 20180610
  16. THYMOGLOBULINE [Suspect]
     Active Substance: LAPINE T-LYMPHOCYTE IMMUNE GLOBULIN
     Dosage: 75 MG ON 09 AND 10/06, 25 MG ON 11 AND 12/06/18UNK
     Route: 042
     Dates: start: 20180611, end: 20180612
  17. BROMAZEPAM ARROW [Suspect]
     Active Substance: BROMAZEPAM
     Indication: ANXIOLYTIC THERAPY
     Dosage: 1.5 IN THE MORNING, 1.5 ON TUESDAY AND 3 MG IN THE EVENING
     Route: 048
     Dates: start: 20180608, end: 20180613
  18. LASILIX [FUROSEMIDE] [Concomitant]
     Dosage: 1/4 OF A TABLET IN THE MORNING
  19. RENVELA [Concomitant]
     Active Substance: SEVELAMER CARBONATE
     Dosage: 3 DF, QD
  20. PERMIXON [Concomitant]
     Active Substance: HERBALS\SAW PALMETTO
     Dosage: 2 DF, QD

REACTIONS (1)
  - Acute kidney injury [Recovering/Resolving]

NARRATIVE: CASE EVENT DATE: 20180615
